FAERS Safety Report 5298630-0 (Version None)
Quarter: 2007Q2

REPORT INFORMATION
  Report Type: 
  Country: None (occurrence: None)
  Receive Date: 20070410
  Receipt Date: 20070330
  Transmission Date: 20071010
  Serious: Yes (Hospitalization, Disabling)
  Sender: FDA-Public Use
  Company Number: 232518K07USA

PATIENT
  Age: 59 Year
  Sex: Female

DRUGS (9)
  1. REBIF [Suspect]
     Indication: MULTIPLE SCLEROSIS
     Dosage: 44 MCG, 3 IN 1 WEEKS, SUBCUTANEOUS ; NOT REPORTED, NOT REPORTED, NOT REPORTED
     Route: 058
     Dates: start: 20030101, end: 20050101
  2. REBIF [Suspect]
     Indication: MULTIPLE SCLEROSIS
     Dosage: 44 MCG, 3 IN 1 WEEKS, SUBCUTANEOUS ; NOT REPORTED, NOT REPORTED, NOT REPORTED
     Route: 058
     Dates: start: 20070201
  3. PREDNISONE TAB [Concomitant]
  4. HIPREX [Concomitant]
  5. DETROL [Concomitant]
  6. SINGULAIR (MONTELUKAST/01362601) [Concomitant]
  7. PREVACID [Concomitant]
  8. FOSAMAX [Concomitant]
  9. PRAVASTATIN [Concomitant]

REACTIONS (12)
  - ABASIA [None]
  - ASTHMA [None]
  - BLOOD CHOLESTEROL INCREASED [None]
  - BONE SCAN ABNORMAL [None]
  - GASTROOESOPHAGEAL REFLUX DISEASE [None]
  - IMMOBILE [None]
  - MUSCULOSKELETAL PAIN [None]
  - PAIN [None]
  - PNEUMONIA [None]
  - PULMONARY EMBOLISM [None]
  - STRESS [None]
  - URINARY TRACT INFECTION [None]
